FAERS Safety Report 20930671 (Version 1)
Quarter: 2022Q2

REPORT INFORMATION
  Report Type: Report from Study
  Country: BR (occurrence: BR)
  Receive Date: 20220608
  Receipt Date: 20220608
  Transmission Date: 20220720
  Serious: Yes (Hospitalization)
  Sender: FDA-Public Use
  Company Number: BR-ELI_LILLY_AND_COMPANY-BR202201002522

PATIENT
  Age: 30 Year
  Sex: Female

DRUGS (1)
  1. ABEMACICLIB [Suspect]
     Active Substance: ABEMACICLIB
     Indication: Breast cancer
     Dosage: 150 MG, BID
     Route: 048
     Dates: start: 20211102, end: 202204

REACTIONS (13)
  - Malaise [Unknown]
  - Anaemia [Unknown]
  - Platelet count decreased [Unknown]
  - Parosmia [Unknown]
  - Abdominal pain [Unknown]
  - Anxiety [Unknown]
  - Headache [Unknown]
  - Epistaxis [Unknown]
  - Illness [Unknown]
  - Vomiting [Unknown]
  - Nausea [Unknown]
  - Toxicity to various agents [Unknown]
  - Asthenia [Unknown]

NARRATIVE: CASE EVENT DATE: 20220112
